FAERS Safety Report 21785368 (Version 1)
Quarter: 2022Q4

REPORT INFORMATION
  Report Type: Spontaneous
  Country: US (occurrence: None)
  Receive Date: 20221223
  Receipt Date: 20221223
  Transmission Date: 20230113
  Serious: Yes (Death)
  Sender: FDA-Public Use
  Company Number: None

PATIENT
  Age: 70 Year
  Sex: Male

DRUGS (1)
  1. LENALIDOMIDE [Suspect]
     Active Substance: LENALIDOMIDE
     Indication: Plasma cell myeloma
     Dosage: FREQUENCY : DAILY;?
     Route: 048
     Dates: start: 20210319, end: 20221106

REACTIONS (11)
  - Back pain [None]
  - Mobility decreased [None]
  - Staphylococcal sepsis [None]
  - Intervertebral discitis [None]
  - Osteomyelitis [None]
  - Paraspinal abscess [None]
  - Psoas abscess [None]
  - Endocarditis [None]
  - Hypoxia [None]
  - Condition aggravated [None]
  - Renal failure [None]

NARRATIVE: CASE EVENT DATE: 20221126
